FAERS Safety Report 7016574-0 (Version None)
Quarter: 2010Q3

REPORT INFORMATION
  Report Type: 
  Country: None (occurrence: None)
  Receive Date: 20100927
  Receipt Date: 20100917
  Transmission Date: 20110219
  Serious: Yes (Hospitalization)
  Sender: FDA-Public Use
  Company Number: A0883079A

PATIENT
  Age: 54 Year
  Sex: Female

DRUGS (7)
  1. TREXIMET [Suspect]
     Indication: MIGRAINE
     Route: 048
  2. FERRLECIT [Suspect]
     Dosage: 125MG MONTHLY
     Route: 042
     Dates: start: 20091210, end: 20100506
  3. MILNACIPRAN [Suspect]
     Indication: PRODUCT USED FOR UNKNOWN INDICATION
     Route: 065
  4. SUBOXONE [Concomitant]
  5. LYRICA [Concomitant]
  6. ZANAFLEX [Concomitant]
  7. SOMA [Concomitant]

REACTIONS (4)
  - ASTHENIA [None]
  - MOVEMENT DISORDER [None]
  - TACHYCARDIA [None]
  - VOMITING [None]
